FAERS Safety Report 20783061 (Version 1)
Quarter: 2022Q2

REPORT INFORMATION
  Report Type: Report from Study
  Country: GB (occurrence: GB)
  Receive Date: 20220504
  Receipt Date: 20220504
  Transmission Date: 20220721
  Serious: Yes (Hospitalization, Other)
  Sender: FDA-Public Use
  Company Number: GB-BRISTOL-MYERS SQUIBB COMPANY-2022-027178

PATIENT
  Age: 63 Year
  Sex: Female
  Weight: 67.6 kg

DRUGS (13)
  1. PACLITAXEL [Suspect]
     Active Substance: PACLITAXEL
     Indication: Pancreatic carcinoma metastatic
     Route: 042
     Dates: start: 20220401, end: 20220408
  2. GEMCITABINE [Suspect]
     Active Substance: GEMCITABINE
     Indication: Pancreatic carcinoma metastatic
     Route: 042
     Dates: start: 20220401, end: 20220408
  3. LANSOPRAZOLE [Concomitant]
     Active Substance: LANSOPRAZOLE
     Indication: Gastrointestinal disorder prophylaxis
     Route: 048
     Dates: start: 20080530
  4. LACTULOSE [Concomitant]
     Active Substance: LACTULOSE
     Indication: Constipation
     Route: 048
     Dates: start: 20220315, end: 20220411
  5. NEFOPAM [Concomitant]
     Active Substance: NEFOPAM
     Indication: Abdominal pain
     Route: 048
     Dates: start: 20220401
  6. DILTIAZEM [Concomitant]
     Active Substance: DILTIAZEM
     Indication: Atrial fibrillation
     Route: 048
     Dates: start: 20151203
  7. ACETAMINOPHEN [Concomitant]
     Active Substance: ACETAMINOPHEN
     Indication: Abdominal pain
     Route: 048
     Dates: start: 20220315
  8. ORAMORPH SR SUSTAINED RELEASE [Concomitant]
     Active Substance: MORPHINE SULFATE
     Indication: Abdominal pain
     Route: 048
     Dates: start: 20220303
  9. AZTREONAM [Concomitant]
     Active Substance: AZTREONAM
     Indication: Infection prophylaxis
     Route: 042
     Dates: start: 20220412, end: 20220412
  10. TEICOPLANIN [Concomitant]
     Active Substance: TEICOPLANIN
     Indication: Infection prophylaxis
     Route: 042
     Dates: start: 20220412, end: 20220412
  11. VANCOMYCIN [Concomitant]
     Active Substance: VANCOMYCIN
     Indication: Infection prophylaxis
     Route: 042
     Dates: start: 20220412
  12. GENTAMICIN [Concomitant]
     Active Substance: GENTAMICIN
     Indication: Infection prophylaxis
     Route: 042
     Dates: start: 20220412
  13. METRONIDAZOLE [Concomitant]
     Active Substance: METRONIDAZOLE
     Indication: Infection prophylaxis
     Route: 042
     Dates: start: 20220412

REACTIONS (2)
  - Diarrhoea [Recovered/Resolved]
  - Atrial fibrillation [Recovered/Resolved]

NARRATIVE: CASE EVENT DATE: 20220411
